FAERS Safety Report 15021064 (Version 2)
Quarter: 2018Q3

REPORT INFORMATION
  Report Type: Spontaneous
  Country: US (occurrence: US)
  Receive Date: 20180618
  Receipt Date: 20180718
  Transmission Date: 20181010
  Serious: Yes (Disabling)
  Sender: FDA-Public Use
  Company Number: US-EISAI MEDICAL RESEARCH-EC-2018-040672

PATIENT
  Age: 29 Year
  Sex: Female
  Weight: 47.6 kg

DRUGS (27)
  1. SOLU?MEDROL [Concomitant]
     Active Substance: METHYLPREDNISOLONE SODIUM SUCCINATE
     Indication: PRODUCT USED FOR UNKNOWN INDICATION
     Dosage: UNKNOWN
     Route: 065
     Dates: start: 201803
  2. TOPAMAX [Concomitant]
     Active Substance: TOPIRAMATE
     Indication: LENNOX-GASTAUT SYNDROME
     Route: 048
  3. ESTRADIOL. [Concomitant]
     Active Substance: ESTRADIOL
     Indication: HYPOPITUITARISM
     Route: 065
  4. PROGESTERONE. [Concomitant]
     Active Substance: PROGESTERONE
     Indication: HYPOPITUITARISM
     Route: 065
  5. BANZEL [Interacting]
     Active Substance: RUFINAMIDE
     Dosage: 1600MG AM AND 1800MG PM
     Route: 048
     Dates: end: 20180429
  6. SEVOFLURANE. [Interacting]
     Active Substance: SEVOFLURANE
     Indication: ANAESTHESIA
     Dosage: UNKNOWN
     Route: 065
     Dates: start: 20180330, end: 20180330
  7. LIDOCAINE. [Concomitant]
     Active Substance: LIDOCAINE
     Indication: PRODUCT USED FOR UNKNOWN INDICATION
     Dosage: UNKNOWN
     Route: 065
     Dates: start: 201803
  8. DEXAMETHASONE. [Concomitant]
     Active Substance: DEXAMETHASONE
     Route: 065
     Dates: start: 20180330, end: 2018
  9. BANZEL [Suspect]
     Active Substance: RUFINAMIDE
     Indication: LENNOX-GASTAUT SYNDROME
     Dosage: UNKNOWN
     Route: 048
     Dates: start: 201008
  10. BANZEL [Interacting]
     Active Substance: RUFINAMIDE
     Route: 048
     Dates: start: 2018
  11. HALOPERIDOL. [Concomitant]
     Active Substance: HALOPERIDOL
     Indication: PROPHYLAXIS OF NAUSEA AND VOMITING
     Dosage: UNKNOWN
     Route: 065
     Dates: start: 20180330
  12. KEPPRA [Concomitant]
     Active Substance: LEVETIRACETAM
     Indication: LENNOX-GASTAUT SYNDROME
     Route: 048
  13. BANZEL [Interacting]
     Active Substance: RUFINAMIDE
     Route: 048
     Dates: start: 201805, end: 201805
  14. EPIDIOLEX [Concomitant]
     Active Substance: CANNABIDIOL
     Route: 065
     Dates: start: 20180703
  15. LANSOPRAZOLE. [Concomitant]
     Active Substance: LANSOPRAZOLE
     Indication: IMPAIRED GASTRIC EMPTYING
     Route: 065
  16. ROCURONIUM [Interacting]
     Active Substance: ROCURONIUM BROMIDE
     Indication: ANAESTHESIA
     Dosage: UNKNOWN
     Route: 065
     Dates: start: 20180330, end: 20180330
  17. ONDANSETRON [Concomitant]
     Active Substance: ONDANSETRON
     Indication: PROPHYLAXIS OF NAUSEA AND VOMITING
     Dosage: UNKNOWN
     Route: 065
     Dates: start: 20180330
  18. EPIDIOLEX [Concomitant]
     Active Substance: CANNABIDIOL
     Indication: LENNOX-GASTAUT SYNDROME
     Route: 065
     Dates: end: 20180702
  19. DEXAMETHASONE. [Concomitant]
     Active Substance: DEXAMETHASONE
     Route: 065
     Dates: start: 2018
  20. BANZEL [Interacting]
     Active Substance: RUFINAMIDE
     Route: 048
     Dates: start: 201805, end: 201806
  21. LEVOTHYROXINE. [Concomitant]
     Active Substance: LEVOTHYROXINE
     Indication: HYPOPITUITARISM
     Route: 065
  22. SOMATROPIN. [Concomitant]
     Active Substance: SOMATROPIN
     Indication: HYPOPITUITARISM
     Route: 058
  23. DEXAMETHASONE. [Concomitant]
     Active Substance: DEXAMETHASONE
     Indication: HYPOPITUITARISM
     Route: 065
     Dates: end: 20180329
  24. BANZEL [Interacting]
     Active Substance: RUFINAMIDE
     Dosage: 1400MG AM AND 1600MG PM
     Route: 048
     Dates: start: 20180430, end: 20180502
  25. BANZEL [Interacting]
     Active Substance: RUFINAMIDE
     Dosage: 1200MG AM AND 1400MG PM
     Route: 048
     Dates: start: 20180503, end: 2018
  26. PROPOFOL. [Interacting]
     Active Substance: PROPOFOL
     Indication: ANAESTHESIA
     Dosage: UNKNOWN
     Route: 065
     Dates: start: 20180330, end: 20180330
  27. BANZEL [Interacting]
     Active Substance: RUFINAMIDE
     Dosage: 400MG AM AND 600MG PM
     Route: 048
     Dates: start: 201806, end: 2018

REACTIONS (5)
  - Drug interaction [Recovering/Resolving]
  - Impaired gastric emptying [Recovering/Resolving]
  - Anticonvulsant drug level increased [Recovering/Resolving]
  - Decreased appetite [Recovering/Resolving]
  - Flatulence [Not Recovered/Not Resolved]

NARRATIVE: CASE EVENT DATE: 2011
